FAERS Safety Report 21158731 (Version 7)
Quarter: 2025Q4

REPORT INFORMATION
  Report Type: Spontaneous
  Country: EU (occurrence: EU)
  Receive Date: 20220802
  Receipt Date: 20251030
  Transmission Date: 20260117
  Serious: Yes (Hospitalization, Other)
  Sender: AUROBINDO
  Company Number: EU-ROCHE-2183622

PATIENT
  Age: 49 Year
  Sex: Female

DRUGS (15)
  1. DULOXETINE [Suspect]
     Active Substance: DULOXETINE
     Indication: Product used for unknown indication
     Dosage: 30 MILLIGRAM, ONCE A DAY
     Route: 065
  2. LEUCOVORIN CALCIUM [Suspect]
     Active Substance: LEUCOVORIN CALCIUM
     Indication: Product used for unknown indication
     Dosage: UNK
     Route: 065
     Dates: end: 20190419
  3. CORTISONE [Suspect]
     Active Substance: CORTISONE
     Indication: Premedication
     Dosage: 500 MILLIGRAM
     Route: 048
  4. CORTISONE [Suspect]
     Active Substance: CORTISONE
     Dosage: 200 MILLIGRAM, ONCE A DAY(FOR 4 DAYS )
     Route: 048
     Dates: start: 20191201
  5. OCREVUS [Suspect]
     Active Substance: OCRELIZUMAB
     Indication: Relapsing-remitting multiple sclerosis
     Dosage: 300 MILLIGRAM
     Route: 042
     Dates: start: 20180830, end: 20180830
  6. OCREVUS [Suspect]
     Active Substance: OCRELIZUMAB
     Dosage: 300 MILLIGRAM
     Route: 042
     Dates: start: 20180913
  7. OCREVUS [Suspect]
     Active Substance: OCRELIZUMAB
     Dosage: 600 MILLIGRAM
     Route: 042
     Dates: start: 20190314
  8. OCREVUS [Suspect]
     Active Substance: OCRELIZUMAB
     Dosage: 600 MILLIGRAM
     Route: 042
     Dates: start: 20190916
  9. OCREVUS [Suspect]
     Active Substance: OCRELIZUMAB
     Dosage: UNK
     Route: 042
     Dates: start: 20220316
  10. CALCIUM [Suspect]
     Active Substance: CALCIUM
     Indication: Product used for unknown indication
     Dosage: UNK
     Route: 065
     Dates: end: 20190419
  11. IBANDRONIC ACID [Concomitant]
     Active Substance: IBANDRONIC ACID
     Indication: Product used for unknown indication
     Dosage: 150 MILLIGRAM,1 MONTH
     Route: 065
  12. OXAZEPAM [Concomitant]
     Active Substance: OXAZEPAM
     Indication: Product used for unknown indication
     Dosage: 0.5 DOSAGE FORM, AS NECESSARY
     Route: 065
  13. DIAZEPAM [Concomitant]
     Active Substance: DIAZEPAM
     Indication: Product used for unknown indication
     Dosage: UNK, AS NECESSARY
     Route: 065
  14. CHOLECALCIFEROL [Concomitant]
     Active Substance: CHOLECALCIFEROL
     Indication: Product used for unknown indication
     Dosage: 20000 INTERNATIONAL UNIT, EVERY WEEK
     Route: 065
  15. TIOTROPIUM BROMIDE [Concomitant]
     Active Substance: TIOTROPIUM BROMIDE
     Indication: Product used for unknown indication
     Dosage: UNK, EVERY MORNING (INHALATION)
     Route: 065

REACTIONS (40)
  - Fracture [Recovered/Resolved]
  - Fall [Unknown]
  - Emphysema [Not Recovered/Not Resolved]
  - Multiple sclerosis relapse [Recovered/Resolved]
  - Groin abscess [Recovered/Resolved]
  - Lumbar vertebral fracture [Recovered/Resolved]
  - Constipation [Recovered/Resolved]
  - Nasopharyngitis [Recovered/Resolved]
  - Asthenia [Recovering/Resolving]
  - Cystitis noninfective [Recovered/Resolved]
  - Migraine [Recovered/Resolved]
  - Aggression [Recovered/Resolved]
  - Visual impairment [Recovered/Resolved]
  - Dyspnoea [Recovered/Resolved]
  - Paranasal sinus discomfort [Recovered/Resolved]
  - Apathy [Not Recovered/Not Resolved]
  - Hyperhidrosis [Recovered/Resolved]
  - Nausea [Recovered/Resolved]
  - Disturbance in attention [Recovered/Resolved]
  - Pelvic pain [Not Recovered/Not Resolved]
  - Pruritus [Recovered/Resolved]
  - Blood urine present [Recovered/Resolved]
  - Hyperventilation [Recovered/Resolved]
  - Back pain [Recovered/Resolved]
  - Nervousness [Recovered/Resolved]
  - Muscle spasms [Recovered/Resolved]
  - Myalgia [Recovered/Resolved]
  - Vocal cord leukoplakia [Recovered/Resolved]
  - Dizziness [Recovered/Resolved]
  - Vomiting [Recovered/Resolved]
  - Ataxia [Not Recovered/Not Resolved]
  - Abdominal distension [Recovered/Resolved]
  - Initial insomnia [Recovered/Resolved]
  - Palpitations [Recovering/Resolving]
  - Pulpitis dental [Recovered/Resolved]
  - COVID-19 [Recovered/Resolved]
  - Arthralgia [Recovering/Resolving]
  - Immunoglobulins decreased [Not Recovered/Not Resolved]
  - Diarrhoea [Recovered/Resolved]
  - Blood immunoglobulin G decreased [Not Recovered/Not Resolved]

NARRATIVE: CASE EVENT DATE: 20180830
